FAERS Safety Report 4741578-8 (Version None)
Quarter: 2005Q3

REPORT INFORMATION
  Report Type: 
  Country: None (occurrence: None)
  Receive Date: 20050808
  Receipt Date: 20050727
  Transmission Date: 20060218
  Serious: Yes (Life-Threatening)
  Sender: FDA-Public Use
  Company Number: DE_050716548

PATIENT
  Sex: Female

DRUGS (3)
  1. CYMBALTA [Suspect]
     Indication: DEPRESSION
     Dosage: 60 MG DAY
     Dates: start: 20050725, end: 20050701
  2. OPIOID [Concomitant]
  3. SEVOFLURANE [Concomitant]

REACTIONS (3)
  - ANAESTHETIC COMPLICATION [None]
  - BLOOD PRESSURE DECREASED [None]
  - BLOOD PRESSURE INCREASED [None]
